FAERS Safety Report 25062095 (Version 3)
Quarter: 2025Q1

REPORT INFORMATION
  Report Type: Spontaneous
  Country: ES (occurrence: ES)
  Receive Date: 20250311
  Receipt Date: 20250317
  Transmission Date: 20250408
  Serious: Yes (Death, Hospitalization)
  Sender: GENMAB
  Company Number: ES-ABBVIE-6170121

PATIENT
  Age: 63 Year
  Sex: Male
  Weight: 109 kg

DRUGS (9)
  1. EPCORITAMAB [Suspect]
     Active Substance: EPCORITAMAB
     Indication: Diffuse large B-cell lymphoma
     Route: 058
     Dates: start: 20250111, end: 20250212
  2. CISPLATIN [Suspect]
     Active Substance: CISPLATIN
     Indication: Diffuse large B-cell lymphoma
     Route: 065
  3. CYTARABINE [Concomitant]
     Active Substance: CYTARABINE
     Indication: Product used for unknown indication
     Route: 065
  4. PLATINOL [Concomitant]
     Active Substance: CISPLATIN
     Indication: Product used for unknown indication
     Route: 065
  5. METHYLPREDNISOLONE [Concomitant]
     Active Substance: METHYLPREDNISOLONE
     Indication: Product used for unknown indication
     Route: 065
     Dates: start: 20250222, end: 20250223
  6. CYTARABINE [Suspect]
     Active Substance: CYTARABINE
  7. METHYLPREDNISOLONE [Suspect]
     Active Substance: METHYLPREDNISOLONE
  8. ETOPOSIDE [Suspect]
     Active Substance: ETOPOSIDE
  9. RITUXIMAB [Suspect]
     Active Substance: RITUXIMAB

REACTIONS (7)
  - Immune effector cell-associated neurotoxicity syndrome [Fatal]
  - Neurological decompensation [Fatal]
  - Klebsiella bacteraemia [Unknown]
  - Hemiplegia [Unknown]
  - Hemiparesis [Unknown]
  - Musculoskeletal disorder [Unknown]
  - Pyrexia [Unknown]

NARRATIVE: CASE EVENT DATE: 20250101
